FAERS Safety Report 13703699 (Version 2)
Quarter: 2018Q1

REPORT INFORMATION
  Report Type: Spontaneous
  Country: US (occurrence: US)
  Receive Date: 20170629
  Receipt Date: 20180103
  Transmission Date: 20180508
  Serious: Yes (Other)
  Sender: FDA-Public Use
  Company Number: US-AVEDRO-AVE-2017-0129-AE

PATIENT
  Age: 43 Year
  Sex: Male
  Weight: 104.42 kg

DRUGS (8)
  1. PREDNISOLONE ACETATE. [Suspect]
     Active Substance: PREDNISOLONE ACETATE
     Indication: PRODUCT USED FOR UNKNOWN INDICATION
     Dosage: 1 DROP
     Dates: start: 20170504
  2. KETOROLAC [Suspect]
     Active Substance: KETOROLAC\KETOROLAC TROMETHAMINE
     Indication: PRODUCT USED FOR UNKNOWN INDICATION
     Dosage: 1 DROP
     Dates: start: 20170504
  3. OFLOXACIN. [Suspect]
     Active Substance: OFLOXACIN
     Indication: PRODUCT USED FOR UNKNOWN INDICATION
     Dosage: 1 DROP
     Dates: start: 20170504
  4. REFRESH PLUS [Suspect]
     Active Substance: CARBOXYMETHYLCELLULOSE SODIUM
     Indication: PRODUCT USED FOR UNKNOWN INDICATION
     Dosage: 1 DROP
     Dates: start: 20170504
  5. BANDAGE CONTACT LENS [Suspect]
     Active Substance: DEVICE
     Indication: CORNEAL EPITHELIUM DEFECT
  6. TETRACAINE. [Suspect]
     Active Substance: TETRACAINE
     Indication: PRODUCT USED FOR UNKNOWN INDICATION
     Dosage: 1 DROP AT 10:57, 11:06, 11:14, 11:22, AND 11:33
     Route: 047
     Dates: start: 20170504, end: 20170504
  7. PHOTREXA VISCOUS [Suspect]
     Active Substance: RIBOFLAVIN 5^-PHOSPHATE SODIUM
     Indication: KERATOCONUS
     Dosage: EVERY 2 MINUTES
     Route: 047
     Dates: start: 20170504, end: 20170504
  8. KXL SYSTEM [Suspect]
     Active Substance: DEVICE
     Indication: KERATOCONUS
     Route: 047
     Dates: start: 20170504, end: 20170504

REACTIONS (8)
  - Astigmatism [Unknown]
  - Ocular discomfort [Recovered/Resolved]
  - Keratoplasty [Unknown]
  - Post procedural infection [Unknown]
  - Corneal epithelium defect [Unknown]
  - Corneal infiltrates [Recovered/Resolved with Sequelae]
  - Corneal opacity [Unknown]
  - Ulcerative keratitis [Recovered/Resolved with Sequelae]

NARRATIVE: CASE EVENT DATE: 20170505
